FAERS Safety Report 8833943 (Version 1)
Quarter: 2012Q4

REPORT INFORMATION
  Report Type: 
  Country: DE (occurrence: DE)
  Receive Date: 20121010
  Receipt Date: 20121010
  Transmission Date: 20130627
  Serious: Yes (Hospitalization)
  Sender: FDA-Public Use
  Company Number: DE-ELI_LILLY_AND_COMPANY-DE201210000108

PATIENT
  Sex: Male

DRUGS (3)
  1. CYMBALTA [Suspect]
     Indication: PAIN
     Dosage: 60 mg, qd
     Route: 048
     Dates: start: 20120928
  2. TARGIN [Concomitant]
     Dosage: UNK, unknown
  3. AMITRIPTYLIN [Concomitant]
     Dosage: UNK, unknown

REACTIONS (6)
  - Unresponsive to stimuli [Not Recovered/Not Resolved]
  - Dysstasia [Not Recovered/Not Resolved]
  - Vertigo [Not Recovered/Not Resolved]
  - Hyperhidrosis [Not Recovered/Not Resolved]
  - Feeling cold [Not Recovered/Not Resolved]
  - Off label use [Not Recovered/Not Resolved]
